FAERS Safety Report 9912644 (Version 3)
Quarter: 2014Q1

REPORT INFORMATION
  Report Type: Report from Study
  Country: BR (occurrence: BR)
  Receive Date: 20140220
  Receipt Date: 20140320
  Transmission Date: 20141002
  Serious: Yes (Hospitalization)
  Sender: FDA-Public Use
  Company Number: BR-ROCHE-643985

PATIENT
  Age: 48 Year
  Sex: Female
  Weight: 95 kg

DRUGS (8)
  1. MABTHERA [Suspect]
     Indication: RHEUMATOID ARTHRITIS
     Dosage: EACH CYCLE CONSISTS OF 2 DOSES EVERY 15 DAYS WITH 6 MONTHS OF PAUSE. DOSE: 500 MG/50 ML
     Route: 042
     Dates: start: 20080801, end: 20130402
  2. MODURETIC [Concomitant]
     Indication: HYPERTENSION
     Route: 065
  3. FOLIC ACID [Concomitant]
     Route: 065
  4. PREXIGE [Concomitant]
     Route: 065
  5. OMEPRAZOLE [Concomitant]
     Route: 065
  6. SYNTHROID [Concomitant]
     Route: 065
  7. PURAN T4 [Concomitant]
  8. GLIFAGE [Concomitant]

REACTIONS (4)
  - Gallbladder disorder [Unknown]
  - Cholecystitis chronic [Unknown]
  - Dysphagia [Recovered/Resolved]
  - Weight decreased [Unknown]
